FAERS Safety Report 13285196 (Version 1)
Quarter: 2017Q1

REPORT INFORMATION
  Report Type: Spontaneous
  Country: US (occurrence: US)
  Receive Date: 20170301
  Receipt Date: 20170301
  Transmission Date: 20170428
  Serious: No
  Sender: FDA-Public Use
  Company Number: None

PATIENT
  Age: 63 Year
  Sex: Male

DRUGS (2)
  1. MEKINST [Concomitant]
  2. TAFINLAR [Suspect]
     Active Substance: DABRAFENIB MESYLATE
     Indication: MALIGNANT MELANOMA

REACTIONS (3)
  - Fatigue [None]
  - Influenza like illness [None]
  - Squamous cell carcinoma [None]

NARRATIVE: CASE EVENT DATE: 20170301
